FAERS Safety Report 14860702 (Version 2)
Quarter: 2018Q2

REPORT INFORMATION
  Report Type: Report from Study
  Country: None (occurrence: US)
  Receive Date: 20180508
  Receipt Date: 20180526
  Transmission Date: 20180711
  Serious: Yes (Hospitalization, Other)
  Sender: FDA-Public Use
  Company Number: US-ABBVIE-18K-163-2348699-00

PATIENT
  Age: 51 Year
  Sex: Female
  Weight: 85.35 kg

DRUGS (3)
  1. ANTABUSE [Suspect]
     Active Substance: DISULFIRAM
     Indication: ALCOHOL REHABILITATION
     Route: 065
     Dates: start: 20180522
  2. HUMIRA [Suspect]
     Active Substance: ADALIMUMAB
     Indication: HIDRADENITIS
     Route: 058
     Dates: start: 201608
  3. HUMIRA [Suspect]
     Active Substance: ADALIMUMAB
     Route: 058

REACTIONS (11)
  - Traumatic intracranial haemorrhage [Recovered/Resolved]
  - Contusion [Recovered/Resolved]
  - Alcohol use [Recovered/Resolved]
  - Alcohol poisoning [Not Recovered/Not Resolved]
  - Arthralgia [Not Recovered/Not Resolved]
  - Chest X-ray abnormal [Unknown]
  - Road traffic accident [Not Recovered/Not Resolved]
  - Arthralgia [Recovered/Resolved]
  - Eye contusion [Recovered/Resolved]
  - Headache [Not Recovered/Not Resolved]
  - Fall [Recovered/Resolved]

NARRATIVE: CASE EVENT DATE: 201711
